FAERS Safety Report 5441581-9 (Version None)
Quarter: 2007Q3

REPORT INFORMATION
  Report Type: 
  Country: None (occurrence: None)
  Receive Date: 20070829
  Receipt Date: 20070813
  Transmission Date: 20080115
  Serious: Yes (Hospitalization, Other)
  Sender: FDA-Public Use
  Company Number: GXKR2007KR06901

PATIENT
  Age: 9 Year
  Sex: Female

DRUGS (5)
  1. VINCRISTINE [Suspect]
     Indication: MEDULLOBLASTOMA
     Dosage: 5 CYCLES
     Dates: start: 20050401
  2. ETOPOSIDE [Suspect]
     Indication: MEDULLOBLASTOMA
     Dosage: 5 CYCLES
     Dates: start: 20050401
  3. CISPLATIN [Suspect]
     Indication: MEDULLOBLASTOMA
     Dosage: 5 CYCLES
     Dates: start: 20050401
  4. CARBOPLATIN [Suspect]
     Indication: MEDULLOBLASTOMA
     Dosage: 5 CYCLES
     Dates: start: 20050401
  5. CLONAZEPAM [Concomitant]

REACTIONS (6)
  - CAECITIS [None]
  - COLONIC PSEUDO-OBSTRUCTION [None]
  - CONVULSION [None]
  - GENERAL PHYSICAL HEALTH DETERIORATION [None]
  - PANCYTOPENIA [None]
  - PSEUDOMEMBRANOUS COLITIS [None]
